FAERS Safety Report 16004959 (Version 1)
Quarter: 2019Q1

REPORT INFORMATION
  Report Type: Spontaneous
  Country: US (occurrence: US)
  Receive Date: 20190129
  Receipt Date: 20190129
  Transmission Date: 20190418
  Serious: Yes (Hospitalization)
  Sender: FDA-Public Use
  Company Number: None

PATIENT
  Age: 64 Year
  Sex: Male

DRUGS (6)
  1. DESCOVY [Suspect]
     Active Substance: EMTRICITABINE\TENOFOVIR ALAFENAMIDE FUMARATE
     Indication: X-RAY
     Dosage: ?          OTHER DOSE:200-25 MG;?
     Route: 048
     Dates: start: 20181218
  2. LOPERAMIDE [Concomitant]
     Active Substance: LOPERAMIDE
  3. DARUNAVIR [Concomitant]
     Active Substance: DARUNAVIR
  4. TIVICAY [Suspect]
     Active Substance: DOLUTEGRAVIR SODIUM
     Indication: X-RAY
     Route: 048
     Dates: start: 20181218
  5. VENTOLIN [Concomitant]
     Active Substance: ALBUTEROL SULFATE
  6. EMRICITABINE [Concomitant]

REACTIONS (1)
  - Hospitalisation [None]
